FAERS Safety Report 5911808-5 (Version None)
Quarter: 2008Q4

REPORT INFORMATION
  Report Type: 
  Country: None (occurrence: None)
  Receive Date: 20081008
  Receipt Date: 20080925
  Transmission Date: 20090506
  Serious: Yes (Hospitalization, Other)
  Sender: FDA-Public Use
  Company Number: DE-ELI_LILLY_AND_COMPANY-DE200809006185

PATIENT
  Sex: Female
  Weight: 61 kg

DRUGS (2)
  1. GEMCITABINE HCL [Suspect]
     Indication: BILE DUCT CANCER
     Dosage: 1000 MG/M2, WEEKLY (1/W)
     Route: 042
     Dates: start: 20080811, end: 20080908
  2. SORAFENIB [Suspect]
     Indication: BILE DUCT CANCER
     Dosage: 400 MG, 2/D
     Route: 048
     Dates: start: 20080811, end: 20080910

REACTIONS (5)
  - CONFUSIONAL STATE [None]
  - HEADACHE [None]
  - MENINGISM [None]
  - PSYCHOTIC DISORDER [None]
  - VISION BLURRED [None]
